FAERS Safety Report 17707375 (Version 2)
Quarter: 2020Q2

REPORT INFORMATION
  Report Type: Spontaneous
  Country: US (occurrence: US)
  Receive Date: 20200424
  Receipt Date: 20200429
  Transmission Date: 20200714
  Serious: No
  Sender: FDA-Public Use
  Company Number: US-GALDERMA-US2020009362

PATIENT
  Sex: Female

DRUGS (1)
  1. DIFFERIN GEL [Suspect]
     Active Substance: ADAPALENE
     Indication: ACNE
     Dosage: 0.1%
     Route: 061

REACTIONS (7)
  - Dry eye [Unknown]
  - Rash [Unknown]
  - Erythema [Unknown]
  - Dry skin [Unknown]
  - Acne [Unknown]
  - Drug ineffective [Unknown]
  - Skin burning sensation [Unknown]
